FAERS Safety Report 11427560 (Version 1)
Quarter: 2015Q3

REPORT INFORMATION
  Report Type: Spontaneous
  Country: US (occurrence: US)
  Receive Date: 20150827
  Receipt Date: 20150827
  Transmission Date: 20151125
  Serious: No
  Sender: FDA-Public Use
  Company Number: US-SA-2015SA009103

PATIENT
  Age: 48 Year
  Sex: Male

DRUGS (1)
  1. AVAPRO [Suspect]
     Active Substance: IRBESARTAN
     Route: 065

REACTIONS (3)
  - Blood bilirubin increased [Unknown]
  - White blood cell count decreased [Unknown]
  - Haemoglobin increased [Unknown]
